FAERS Safety Report 7668461-2 (Version None)
Quarter: 2011Q3

REPORT INFORMATION
  Report Type: 
  Country: None (occurrence: None)
  Receive Date: 20110803
  Receipt Date: 20110729
  Transmission Date: 20111222
  Serious: Yes (Death)
  Sender: FDA-Public Use
  Company Number: 20109325

PATIENT
  Age: 54 Year
  Sex: Male

DRUGS (3)
  1. BUPIVACAINE HCL [Concomitant]
  2. MORPHINE [Concomitant]
  3. LIORESAL [Suspect]
     Indication: MUSCLE SPASTICITY
     Dosage: 24.970 MCG, DAILY, INTRATHECAL
     Route: 039

REACTIONS (1)
  - DEATH [None]
